FAERS Safety Report 25921866 (Version 2)
Quarter: 2025Q4

REPORT INFORMATION
  Report Type: Spontaneous
  Country: US (occurrence: US)
  Receive Date: 20251015
  Receipt Date: 20251228
  Transmission Date: 20260118
  Serious: Yes (Hospitalization, Other)
  Sender: SANOFI AVENTIS
  Company Number: US-DialogSolutions-SAAVPROD-PI828725-C1

PATIENT
  Age: 2 Month
  Sex: Female

DRUGS (4)
  1. CLOFARABINE [Suspect]
     Active Substance: CLOFARABINE
     Indication: Langerhans^ cell histiocytosis
     Dosage: 0.8 MG/KG, QCY
     Route: 041
     Dates: start: 2023, end: 2024
  2. CYTARABINE [Concomitant]
     Active Substance: CYTARABINE
     Indication: Langerhans^ cell histiocytosis
     Dosage: UNK UNK, QCY
  3. VINBLASTINE [Concomitant]
     Active Substance: VINBLASTINE
     Indication: Langerhans^ cell histiocytosis
     Dosage: UNK UNK, QCY
  4. PREDNISONE [Concomitant]
     Active Substance: PREDNISONE
     Indication: Langerhans^ cell histiocytosis
     Dosage: UNK QCY
     Route: 048

REACTIONS (5)
  - Haematotoxicity [Unknown]
  - Off label use [Unknown]
  - Pyrexia [Unknown]
  - Neutropenia [Unknown]
  - Condition aggravated [Unknown]
